FAERS Safety Report 8366052-1 (Version None)
Quarter: 2012Q2

REPORT INFORMATION
  Report Type: 
  Country: None (occurrence: None)
  Receive Date: 20120516
  Receipt Date: 20120516
  Transmission Date: 20120825
  Serious: Yes (Hospitalization)
  Sender: FDA-Public Use
  Company Number: None

PATIENT
  Sex: Female
  Weight: 80.2867 kg

DRUGS (1)
  1. RECLAST [Suspect]
     Dosage: SOMETIME BEFORE 9-29-11
     Dates: end: 20110929

REACTIONS (3)
  - TOOTH EXTRACTION [None]
  - ORAL PAIN [None]
  - JAW DISORDER [None]
